FAERS Safety Report 7511858-1 (Version None)
Quarter: 2011Q2

REPORT INFORMATION
  Report Type: 
  Country: None (occurrence: None)
  Receive Date: 20110531
  Receipt Date: 20110524
  Transmission Date: 20111010
  Serious: Yes (Other)
  Sender: FDA-Public Use
  Company Number: US-PFIZER INC-2011113138

PATIENT
  Sex: Female

DRUGS (2)
  1. LIPITOR [Suspect]
     Dosage: 20 MG, UNK (40 MG HALF TABLET)
  2. ACETAMINOPHEN [Concomitant]
     Indication: PAIN
     Dosage: UNK

REACTIONS (7)
  - FATIGUE [None]
  - ILL-DEFINED DISORDER [None]
  - SUICIDAL IDEATION [None]
  - MUSCULAR WEAKNESS [None]
  - MALAISE [None]
  - CHOKING [None]
  - HAIR COLOUR CHANGES [None]
